FAERS Safety Report 16758429 (Version 1)
Quarter: 2019Q3

REPORT INFORMATION
  Report Type: Spontaneous
  Country: NL (occurrence: NL)
  Receive Date: 20190830
  Receipt Date: 20190830
  Transmission Date: 20191005
  Serious: Yes (Other)
  Sender: FDA-Public Use
  Company Number: NL-ACCORD-153268

PATIENT
  Sex: Male

DRUGS (4)
  1. PREDNISOLONE. [Concomitant]
     Active Substance: PREDNISOLONE
     Dosage: 1D1T, STRENGTH: 30 MG
     Dates: start: 20190618, end: 20190629
  2. COLCHICINE. [Concomitant]
     Active Substance: COLCHICINE
     Dosage: 2-3D1T, STRENGTH: 0.5 MG
  3. ALLOPURINOL. [Suspect]
     Active Substance: ALLOPURINOL
     Indication: GOUT
     Dosage: STRENGTH: 100 MG, 1D2T
     Dates: start: 20190418
  4. FEBUXOSTAT. [Concomitant]
     Active Substance: FEBUXOSTAT
     Dosage: 1 DD 1, STRENGTH: 80 MG

REACTIONS (1)
  - Chorioretinopathy [Unknown]
